FAERS Safety Report 16045018 (Version 1)
Quarter: 2019Q1

REPORT INFORMATION
  Report Type: Spontaneous
  Country: US (occurrence: US)
  Receive Date: 20190307
  Receipt Date: 20190307
  Transmission Date: 20190418
  Serious: No
  Sender: FDA-Public Use
  Company Number: US-GLAXOSMITHKLINE-US2019039010

PATIENT
  Sex: Female

DRUGS (1)
  1. BENLYSTA [Suspect]
     Active Substance: BELIMUMAB
     Indication: PRODUCT USED FOR UNKNOWN INDICATION
     Dosage: UNK
     Route: 058

REACTIONS (10)
  - Sinusitis [Unknown]
  - Dysgeusia [Recovered/Resolved]
  - Rhinorrhoea [Unknown]
  - Ear pruritus [Unknown]
  - Oropharyngeal pain [Unknown]
  - Respiratory tract congestion [Unknown]
  - Glossodynia [Recovered/Resolved]
  - Aphonia [Unknown]
  - Pyrexia [Unknown]
  - Mastication disorder [Unknown]

NARRATIVE: CASE EVENT DATE: 201812
